FAERS Safety Report 10459640 (Version 1)
Quarter: 2014Q3

REPORT INFORMATION
  Report Type: Report from Study
  Country: US (occurrence: US)
  Receive Date: 20140917
  Receipt Date: 20140917
  Transmission Date: 20150326
  Serious: Yes (Other)
  Sender: FDA-Public Use
  Company Number: US-BAYER-2014-136330

PATIENT
  Age: 61 Year
  Sex: Male
  Weight: 79.37 kg

DRUGS (1)
  1. NEXAVAR [Suspect]
     Active Substance: SORAFENIB
     Indication: HEPATIC CANCER
     Dosage: UNK
     Route: 048
     Dates: start: 2013

REACTIONS (3)
  - Skin reaction [Recovered/Resolved]
  - Malaise [Recovered/Resolved]
  - Aphagia [Recovered/Resolved]

NARRATIVE: CASE EVENT DATE: 2013
